FAERS Safety Report 10045081 (Version 3)
Quarter: 2014Q2

REPORT INFORMATION
  Report Type: Report from Study
  Country: US (occurrence: US)
  Receive Date: 20140328
  Receipt Date: 20140520
  Transmission Date: 20141212
  Serious: Yes (Hospitalization)
  Sender: FDA-Public Use
  Company Number: US-ROCHE-1367577

PATIENT
  Age: 17 Year
  Sex: Male
  Weight: 38 kg

DRUGS (1)
  1. NUTROPIN AQ [Suspect]
     Indication: PRODUCT USED FOR UNKNOWN INDICATION
     Route: 030
     Dates: start: 20120403, end: 20140314

REACTIONS (4)
  - Epiphysiolysis [Recovered/Resolved]
  - Epiphyses delayed fusion [Unknown]
  - Arthralgia [Unknown]
  - Pain in extremity [Unknown]
